FAERS Safety Report 10062213 (Version 1)
Quarter: 2014Q2

REPORT INFORMATION
  Report Type: Spontaneous
  Country: CA (occurrence: CA)
  Receive Date: 20140407
  Receipt Date: 20140407
  Transmission Date: 20141212
  Serious: Yes (Other)
  Sender: FDA-Public Use
  Company Number: CA-ROCHE-1375791

PATIENT
  Sex: Female

DRUGS (13)
  1. ACTEMRA [Suspect]
     Indication: PRODUCT USED FOR UNKNOWN INDICATION
     Route: 042
  2. RITUXAN [Suspect]
     Indication: PRODUCT USED FOR UNKNOWN INDICATION
     Dosage: THERAPY DURATION: 154 DAYS
     Route: 042
  3. PLAQUENIL [Suspect]
     Indication: PRODUCT USED FOR UNKNOWN INDICATION
     Route: 065
  4. CYCLOBENZAPRINE [Concomitant]
     Route: 065
  5. ERGOCALCIFEROL [Concomitant]
     Route: 065
  6. FOLIC ACID [Concomitant]
     Route: 065
  7. GARLIC [Concomitant]
     Route: 065
  8. METHOTREXATE [Concomitant]
     Route: 065
  9. NAPROXEN [Concomitant]
     Route: 065
  10. SULFASALAZINE [Concomitant]
     Route: 065
  11. SYNTHROID [Concomitant]
     Route: 065
  12. TYLENOL WITH CODEINE [Concomitant]
     Route: 065
  13. VITAMIN B COMPLEX [Concomitant]
     Route: 065

REACTIONS (1)
  - Cataract [Unknown]
